FAERS Safety Report 9626962 (Version 1)
Quarter: 2013Q4

REPORT INFORMATION
  Report Type: Spontaneous
  Country: CH (occurrence: CH)
  Receive Date: 20131016
  Receipt Date: 20131016
  Transmission Date: 20140711
  Serious: Yes (Other)
  Sender: FDA-Public Use
  Company Number: PHHY2013CH114806

PATIENT
  Age: 63 Year
  Sex: Male

DRUGS (2)
  1. ZOMETA [Suspect]
     Indication: METASTASES TO BONE
     Dosage: 4 MG, PER 5 ML, MONTHLY
  2. ZOLADEX [Concomitant]
     Dosage: UNK UKN, UNK
     Route: 058
     Dates: start: 2005

REACTIONS (4)
  - Accident [Unknown]
  - Bone disorder [Unknown]
  - Impaired healing [Recovering/Resolving]
  - Femur fracture [Unknown]
